FAERS Safety Report 7057663-4 (Version None)
Quarter: 2010Q4

REPORT INFORMATION
  Report Type: 
  Country: None (occurrence: None)
  Receive Date: 20101022
  Receipt Date: 20101012
  Transmission Date: 20110411
  Serious: Yes (Other)
  Sender: FDA-Public Use
  Company Number: DE-PFIZER INC-2010129378

PATIENT
  Age: 62 Year
  Sex: Female

DRUGS (2)
  1. AROMASIN [Suspect]
     Dosage: UNK
     Route: 048
     Dates: start: 20090101
  2. VERAPAMIL [Concomitant]

REACTIONS (1)
  - JOINT SWELLING [None]
